FAERS Safety Report 5448761-7 (Version None)
Quarter: 2007Q3

REPORT INFORMATION
  Report Type: 
  Country: None (occurrence: None)
  Receive Date: 20070911
  Receipt Date: 20070905
  Transmission Date: 20080115
  Serious: Yes (Other)
  Sender: FDA-Public Use
  Company Number: US-BAYER-200712495BCC

PATIENT
  Age: 75 Year
  Sex: Female
  Weight: 71 kg

DRUGS (3)
  1. ASPIRIN [Suspect]
     Indication: MALAISE
     Dosage: AS USED: 325 MG  UNIT DOSE: 325 MG
     Route: 048
     Dates: start: 20070201
  2. ASPIRIN [Suspect]
     Dosage: TOTAL DAILY DOSE: 650 MG  UNIT DOSE: 325 MG
     Route: 048
     Dates: start: 20070803
  3. LEVOTHYROXINE SODIUM [Concomitant]

REACTIONS (7)
  - ASTHMA [None]
  - COLLAPSE OF LUNG [None]
  - CYANOSIS [None]
  - DYSPNOEA [None]
  - HYPERSENSITIVITY [None]
  - RHINORRHOEA [None]
  - SINUS CONGESTION [None]
